FAERS Safety Report 6533433-8 (Version None)
Quarter: 2010Q1

REPORT INFORMATION
  Report Type: 
  Country: None (occurrence: None)
  Receive Date: 20100111
  Receipt Date: 20100104
  Transmission Date: 20100710
  Serious: Yes (Death)
  Sender: FDA-Public Use
  Company Number: US-TYCO HEALTHCARE/MALLINCKRODT-T201000001

PATIENT

DRUGS (1)
  1. METHYLIN [Suspect]
     Dosage: UNK
     Route: 042

REACTIONS (1)
  - OVERDOSE [None]
